FAERS Safety Report 4746947-8 (Version None)
Quarter: 2005Q3

REPORT INFORMATION
  Report Type: 
  Country: None (occurrence: None)
  Receive Date: 20050817
  Receipt Date: 20050721
  Transmission Date: 20060218
  Serious: Yes (Life-Threatening)
  Sender: FDA-Public Use
  Company Number: KR-SANOFI-SYNTHELABO-A01200505038

PATIENT
  Sex: Female
  Weight: 78.7 kg

DRUGS (10)
  1. ELOXATIN [Suspect]
     Indication: COLON CANCER
     Route: 042
     Dates: start: 20050721, end: 20050721
  2. ELOXATIN [Suspect]
     Route: 042
     Dates: start: 20050804, end: 20050804
  3. FLUOROURACIL [Concomitant]
     Indication: COLON CANCER
     Dosage: BOLUS 400, INFUSION 600 MG/M2
     Route: 042
     Dates: start: 20050501
  4. LEUCOVORIN [Concomitant]
     Indication: COLON CANCER
     Dates: start: 20050501
  5. NASEA [Concomitant]
     Indication: DRUG THERAPY
     Route: 048
     Dates: start: 20050721, end: 20050721
  6. NASEA [Concomitant]
     Route: 042
     Dates: start: 20050721, end: 20050721
  7. MAGMIL [Concomitant]
     Indication: CONSTIPATION
     Route: 048
     Dates: start: 20050717, end: 20050717
  8. AMITRIPTYLINE HCL [Concomitant]
     Indication: NEUROPATHY
     Route: 048
     Dates: start: 20050609, end: 20050101
  9. TENORMIN [Concomitant]
     Indication: HYPERTENSION
     Route: 048
     Dates: start: 20050526
  10. CIMET [Concomitant]
     Indication: ABDOMINAL PAIN UPPER
     Route: 048
     Dates: start: 20050625, end: 20050101

REACTIONS (12)
  - ANAPHYLACTIC REACTION [None]
  - BLOOD PRESSURE SYSTOLIC INCREASED [None]
  - CHEST DISCOMFORT [None]
  - DIZZINESS [None]
  - DYSPNOEA [None]
  - HYPERHIDROSIS [None]
  - HYPOTENSION [None]
  - LOSS OF CONSCIOUSNESS [None]
  - NAUSEA [None]
  - RASH [None]
  - RASH GENERALISED [None]
  - SHOCK [None]
